FAERS Safety Report 9817619 (Version 1)
Quarter: 2013Q4

REPORT INFORMATION
  Report Type: Spontaneous
  Country: US (occurrence: None)
  Receive Date: 20131223
  Receipt Date: 20131223
  Transmission Date: 20140711
  Serious: Yes (Other)
  Sender: FDA-Public Use
  Company Number: 217814

PATIENT
  Age: 57 Year
  Sex: Female

DRUGS (1)
  1. PICATO GEL [Suspect]
     Indication: ACTINIC KERATOSIS
     Route: 061
     Dates: start: 20120518, end: 20120519

REACTIONS (6)
  - Erythema [None]
  - Blister [None]
  - Migraine [None]
  - Oropharyngeal pain [None]
  - Incorrect dose administered [None]
  - Drug dispensing error [None]
